FAERS Safety Report 18318211 (Version 1)
Quarter: 2020Q3

REPORT INFORMATION
  Report Type: Spontaneous
  Country: US (occurrence: US)
  Receive Date: 20200925
  Receipt Date: 20200925
  Transmission Date: 20201103
  Serious: Yes (Other)
  Sender: FDA-Public Use
  Company Number: None

PATIENT
  Age: 47 Year
  Sex: Male
  Weight: 99 kg

DRUGS (2)
  1. MULTIVITAMIN [Concomitant]
     Active Substance: VITAMINS
  2. URSODIOL 300 MG [Suspect]
     Active Substance: URSODIOL
     Route: 048

REACTIONS (2)
  - Oesophageal irritation [None]
  - Product physical issue [None]

NARRATIVE: CASE EVENT DATE: 20200925
